FAERS Safety Report 8349814-6 (Version None)
Quarter: 2012Q2

REPORT INFORMATION
  Report Type: 
  Country: None (occurrence: None)
  Receive Date: 20120510
  Receipt Date: 20120501
  Transmission Date: 20120825
  Serious: Yes (Death)
  Sender: FDA-Public Use
  Company Number: CA-JNJFOC-20120308703

PATIENT
  Sex: Male

DRUGS (3)
  1. REMICADE [Suspect]
     Dosage: 5 VIALS
     Route: 042
     Dates: end: 20120201
  2. REMICADE [Suspect]
     Indication: CROHN'S DISEASE
     Dosage: 5 VIALS
     Route: 042
     Dates: start: 20110915
  3. REMICADE [Suspect]
     Dosage: 5 VIALS
     Route: 042
     Dates: start: 20100401

REACTIONS (1)
  - DEATH [None]
